FAERS Safety Report 6382950-2 (Version None)
Quarter: 2009Q3

REPORT INFORMATION
  Report Type: 
  Country: None (occurrence: None)
  Receive Date: 20090930
  Receipt Date: 20090916
  Transmission Date: 20100115
  Serious: Yes (Life-Threatening)
  Sender: FDA-Public Use
  Company Number: FR-PFIZER INC-2009269415

PATIENT
  Age: 7 Week

DRUGS (8)
  1. ALDACTONE [Suspect]
     Indication: OEDEMA
     Dosage: UNK
     Dates: start: 20090729, end: 20090804
  2. THIOPHENICOL [Suspect]
     Indication: MENINGITIS BACTERIAL
     Dosage: 65 MG, EVERY 6 HOURS
     Route: 002
     Dates: start: 20090731, end: 20090804
  3. ESIDRIX [Suspect]
     Indication: OEDEMA
     Dosage: UNK
     Dates: start: 20090729, end: 20090804
  4. DOLIPRANE [Concomitant]
     Dosage: UNK
     Dates: start: 20090730, end: 20090804
  5. CLAFORAN [Concomitant]
     Dosage: UNK
     Dates: start: 20090623, end: 20090731
  6. CIFLOX [Concomitant]
     Dosage: UNK
     Dates: start: 20090624, end: 20090731
  7. VANCOMYCIN [Concomitant]
     Dosage: UNK
     Dates: start: 20090621
  8. GENTAMICIN [Concomitant]
     Dosage: UNK
     Dates: start: 20090621

REACTIONS (2)
  - AGRANULOCYTOSIS [None]
  - THROMBOCYTOPENIA [None]
